FAERS Safety Report 8167125-9 (Version None)
Quarter: 2012Q1

REPORT INFORMATION
  Report Type: 
  Country: None (occurrence: None)
  Receive Date: 20120103
  Receipt Date: 20120103
  Transmission Date: 20120608
  Serious: Yes (Other)
  Sender: FDA-Public Use
  Company Number: AE-2011-002919

PATIENT
  Age: 54 Year
  Sex: Female
  Weight: 59.8748 kg

DRUGS (7)
  1. INCIVEK [Suspect]
     Dosage: 2250 MG (750 MG, 1 IN 8 HR), ORAL
     Route: 048
     Dates: start: 20111014
  2. RIBAVIRIN [Concomitant]
  3. THORAZINE [Concomitant]
  4. PEGASYS [Concomitant]
  5. LEXAPRO [Concomitant]
  6. NEUPOGEN [Concomitant]
  7. AMBIEN [Concomitant]

REACTIONS (6)
  - BLOOD COUNT ABNORMAL [None]
  - DECREASED APPETITE [None]
  - INFLUENZA LIKE ILLNESS [None]
  - SLUGGISHNESS [None]
  - FATIGUE [None]
  - VOMITING [None]
